FAERS Safety Report 22196284 (Version 1)
Quarter: 2023Q2

REPORT INFORMATION
  Report Type: Report from Study
  Country: CA (occurrence: CA)
  Receive Date: 20230411
  Receipt Date: 20230411
  Transmission Date: 20230722
  Serious: Yes (Other)
  Sender: FDA-Public Use
  Company Number: None

PATIENT
  Age: 24 Year
  Sex: Male

DRUGS (30)
  1. PIOGLITAZONE HYDROCHLORIDE [Suspect]
     Active Substance: PIOGLITAZONE HYDROCHLORIDE
     Indication: Product used for unknown indication
  2. PANTOPRAZOLE [Suspect]
     Active Substance: PANTOPRAZOLE
     Indication: Product used for unknown indication
     Route: 042
  3. ALOGLIPTIN [Suspect]
     Active Substance: ALOGLIPTIN
     Indication: Product used for unknown indication
  4. ALOGLIPTIN BENZOATE\METFORMIN HYDROCHLORIDE [Suspect]
     Active Substance: ALOGLIPTIN BENZOATE\METFORMIN HYDROCHLORIDE
     Indication: Product used for unknown indication
  5. ALVESCO [Suspect]
     Active Substance: CICLESONIDE
     Indication: Product used for unknown indication
     Dosage: DOSAGE FORM: AEROSOL, METERED DOSE
  6. ROFLUMILAST [Suspect]
     Active Substance: ROFLUMILAST
     Indication: Product used for unknown indication
  7. DEXLANSOPRAZOLE [Suspect]
     Active Substance: DEXLANSOPRAZOLE
     Indication: Product used for unknown indication
     Dosage: DOSAGE FORM: CAPSULE, DELAYED RELEASE
  8. FIBRINOGEN HUMAN\THROMBIN HUMAN [Suspect]
     Active Substance: FIBRINOGEN HUMAN\THROMBIN HUMAN
     Indication: Product used for unknown indication
  9. AZILSARTAN MEDOXOMIL\CHLORTHALIDONE [Suspect]
     Active Substance: AZILSARTAN MEDOXOMIL\CHLORTHALIDONE
     Indication: Product used for unknown indication
  10. VEDOLIZUMAB [Suspect]
     Active Substance: VEDOLIZUMAB
     Indication: Colitis ulcerative
     Dosage: DOSAGE FORM: POWDER FOR SOLUTION INTRAVENOUS
     Route: 042
  11. PANTOPRAZOLE SODIUM [Suspect]
     Active Substance: PANTOPRAZOLE SODIUM
     Indication: Product used for unknown indication
     Dosage: DOSAGE FORM: TABLET (ENTERIC COATED)
  12. CICLESONIDE [Suspect]
     Active Substance: CICLESONIDE
     Indication: Product used for unknown indication
     Dosage: DOSAGE FORM: SPRAY, METERED DOSE
  13. ASACOL [Concomitant]
     Active Substance: MESALAMINE
     Dosage: DOSAGE FORM: TABLET (ENTERIC-COATED)
  14. BUDESONIDE [Concomitant]
     Active Substance: BUDESONIDE
  15. CIMZIA [Concomitant]
     Active Substance: CERTOLIZUMAB PEGOL
  16. GRAVOL [Concomitant]
     Active Substance: DIMENHYDRINATE
     Indication: Nausea
  17. HUMIRA [Concomitant]
     Active Substance: ADALIMUMAB
     Route: 058
  18. IMURAN [Concomitant]
     Active Substance: AZATHIOPRINE
  19. INFLIXIMAB [Concomitant]
     Active Substance: INFLIXIMAB
     Dosage: POWDER FOR SOLUTION INTRAVENOUS
  20. MESALAMINE [Concomitant]
     Active Substance: MESALAMINE
  21. METHOTREXATE [Concomitant]
     Active Substance: METHOTREXATE
  22. MESALAMINE [Concomitant]
     Active Substance: MESALAMINE
     Dosage: DOSAGE FORM: TABLET (DELAYED AND EXTENDED RELEASE)
  23. PARA-AMINOSALICYLIC ACID [Concomitant]
     Active Substance: AMINOSALICYLIC ACID
  24. PENTASA [Concomitant]
     Active Substance: MESALAMINE
  25. PURINETHOL [Concomitant]
     Active Substance: MERCAPTOPURINE
  26. INFLIXIMAB [Concomitant]
     Active Substance: INFLIXIMAB
     Dosage: DOSAGE FORM: POWDER FOR SOLUTION INTRAVENOUS
  27. SIMPONI [Concomitant]
     Active Substance: GOLIMUMAB
     Dosage: DOSAGE FORM: SOLUTION SUBCUTANEOUS
  28. STELARA [Concomitant]
     Active Substance: USTEKINUMAB
     Dosage: DOSAGE FORM: SOLUTION SUBCUTANEOUS
  29. TYSABRI [Concomitant]
     Active Substance: NATALIZUMAB
     Dosage: DOSAGE FORM: SOLUTION INTRAVENOUS
  30. TOFACITINIB [Concomitant]
     Active Substance: TOFACITINIB

REACTIONS (2)
  - Inflammatory bowel disease [Not Recovered/Not Resolved]
  - Therapeutic product effect decreased [Unknown]
